FAERS Safety Report 17624687 (Version 1)
Quarter: 2020Q2

REPORT INFORMATION
  Report Type: Spontaneous
  Country: CN (occurrence: CN)
  Receive Date: 20200403
  Receipt Date: 20200403
  Transmission Date: 20200713
  Serious: No
  Sender: FDA-Public Use
  Company Number: CN-ELI_LILLY_AND_COMPANY-CN202004001081

PATIENT
  Age: 60 Year
  Sex: Male

DRUGS (5)
  1. MEROPENEM. [Suspect]
     Active Substance: MEROPENEM
     Indication: PNEUMONIA
     Dosage: 0.2 G, TID
     Route: 041
     Dates: start: 20200303, end: 20200316
  2. VORICONAZOLE. [Suspect]
     Active Substance: VORICONAZOLE
     Indication: PNEUMONIA
     Dosage: 2 G, BID
     Route: 041
     Dates: start: 20200303, end: 20200316
  3. ZYPREXA [Suspect]
     Active Substance: OLANZAPINE
     Dosage: 2.5 UNK
     Route: 048
     Dates: start: 20200317
  4. ZYPREXA [Suspect]
     Active Substance: OLANZAPINE
     Dosage: 2.5 UNK
     Route: 048
     Dates: start: 20200316, end: 20200317
  5. ZYPREXA [Suspect]
     Active Substance: OLANZAPINE
     Indication: PNEUMONIA
     Dosage: 5 MG, DAILY
     Route: 048
     Dates: start: 20200303, end: 20200316

REACTIONS (2)
  - Leukopenia [Recovering/Resolving]
  - Off label use [Unknown]

NARRATIVE: CASE EVENT DATE: 20200303
